FAERS Safety Report 8224476-7 (Version None)
Quarter: 2012Q1

REPORT INFORMATION
  Report Type: 
  Country: None (occurrence: None)
  Receive Date: 20120321
  Receipt Date: 20120312
  Transmission Date: 20120608
  Serious: Yes (Other)
  Sender: FDA-Public Use
  Company Number: PHHY2012SE022845

PATIENT
  Age: 55 Year
  Sex: Male

DRUGS (9)
  1. CLOZAPINE [Suspect]
     Route: 048
  2. CLOZAPINE [Suspect]
     Route: 048
  3. CLOZAPINE [Suspect]
     Route: 048
  4. ENALAPRIL MALEATE [Concomitant]
  5. OXAZEPAM [Concomitant]
  6. ESIDRIX [Concomitant]
  7. METOPROLOL SUCCINATE [Concomitant]
  8. METFORMIN HEXAL SANDOZ [Concomitant]
  9. ZOPICLONE ACTAVIS [Concomitant]

REACTIONS (4)
  - BLOOD PRESSURE INCREASED [None]
  - HEART RATE INCREASED [None]
  - FATIGUE [None]
  - DIABETES MELLITUS [None]
